FAERS Safety Report 5008271-8 (Version None)
Quarter: 2006Q2

REPORT INFORMATION
  Report Type: 
  Country: None (occurrence: None)
  Receive Date: 20060523
  Receipt Date: 20050809
  Transmission Date: 20061013
  Serious: No
  Sender: FDA-Public Use
  Company Number: A-US2004-07308

PATIENT
  Age: 21 Year
  Sex: Female

DRUGS (2)
  1. FLOLAN [Suspect]
     Indication: DRUG USE FOR UNKNOWN INDICATION
     Route: 065
     Dates: start: 20020601
  2. TRACLEER [Suspect]
     Indication: PULMONARY HYPERTENSION
     Dosage: 62.5MG TWICE PER DAY
     Route: 048

REACTIONS (1)
  - HEADACHE [None]
